FAERS Safety Report 7330672-3 (Version None)
Quarter: 2011Q1

REPORT INFORMATION
  Report Type: 
  Country: None (occurrence: None)
  Receive Date: 20110225
  Receipt Date: 20110225
  Transmission Date: 20110831
  Serious: Yes (Other)
  Sender: FDA-Public Use
  Company Number: None

PATIENT
  Sex: Female
  Weight: 51.4 kg

DRUGS (1)
  1. APOKYN 3ML CARTRIDGES [Suspect]
     Indication: PARKINSON'S DISEASE
     Dosage: 0.4ML (4MG) NMT 5 DOSES/DAY SQ
     Route: 058
     Dates: start: 20110127, end: 20110202

REACTIONS (1)
  - ABASIA [None]
